FAERS Safety Report 6423157-X (Version None)
Quarter: 2009Q4

REPORT INFORMATION
  Report Type: 
  Country: None (occurrence: None)
  Receive Date: 20091102
  Receipt Date: 20091001
  Transmission Date: 20100525
  Serious: No
  Sender: FDA-Public Use
  Company Number: US-BAYER-200932297NA

PATIENT
  Age: 35 Year
  Sex: Female
  Weight: 106 kg

DRUGS (1)
  1. MIRENA [Suspect]
     Indication: CONTRACEPTION
     Dosage: CONTINUOUS
     Route: 015
     Dates: start: 20090429

REACTIONS (5)
  - DEVICE EXPULSION [None]
  - MEDICAL DEVICE COMPLICATION [None]
  - MENSTRUATION IRREGULAR [None]
  - SALPINGO-OOPHORITIS [None]
  - WEIGHT INCREASED [None]
